FAERS Safety Report 6316986-4 (Version None)
Quarter: 2009Q3

REPORT INFORMATION
  Report Type: 
  Country: None (occurrence: None)
  Receive Date: 20090820
  Receipt Date: 20090807
  Transmission Date: 20100115
  Serious: Yes (Hospitalization)
  Sender: FDA-Public Use
  Company Number: -MYLANLABS-2009S1014247

PATIENT
  Age: 88 Year
  Sex: Male

DRUGS (5)
  1. BACLOFEN [Suspect]
     Indication: DRUG USE FOR UNKNOWN INDICATION
     Route: 048
     Dates: start: 20090620
  2. NULYTELY [Concomitant]
     Indication: DRUG USE FOR UNKNOWN INDICATION
  3. OXASCAND [Concomitant]
     Indication: DRUG USE FOR UNKNOWN INDICATION
  4. RESULAX [Concomitant]
     Indication: DRUG USE FOR UNKNOWN INDICATION
  5. PROSCAR [Concomitant]
     Indication: DRUG USE FOR UNKNOWN INDICATION

REACTIONS (2)
  - CONVULSION [None]
  - MUSCLE SPASMS [None]
